FAERS Safety Report 15752317 (Version 2)
Quarter: 2019Q2

REPORT INFORMATION
  Report Type: Spontaneous
  Country: GB (occurrence: BE)
  Receive Date: 20181221
  Receipt Date: 20190405
  Transmission Date: 20190711
  Serious: Yes (Other)
  Sender: FDA-Public Use
  Company Number: BE-FRESENIUS KABI-FK201812956

PATIENT
  Age: 52 Year
  Sex: Female
  Weight: 82 kg

DRUGS (12)
  1. EMTRICITABINE/TENOFOVIR ALAFENAMIDE FUMARATE/BICTEGRAVIR SODIUM [Concomitant]
     Indication: PRODUCT USED FOR UNKNOWN INDICATION
     Route: 048
     Dates: start: 20190311
  2. CALCIUM LEVOFOLINATE [Concomitant]
     Active Substance: LEVOLEUCOVORIN CALCIUM
     Indication: PROPHYLAXIS
     Dosage: 7.5 MG, BID
     Route: 048
     Dates: start: 20181031
  3. PYRIMETHAMINE [Suspect]
     Active Substance: PYRIMETHAMINE
     Dosage: 25 MG, QD
     Route: 065
  4. PYRIMETHAMINE [Suspect]
     Active Substance: PYRIMETHAMINE
     Dosage: 75 MG, QD
     Route: 048
     Dates: start: 20181031
  5. SULFADIAZINE. [Suspect]
     Active Substance: SULFADIAZINE
     Indication: TOXOPLASMOSIS
     Dosage: UNK
     Route: 065
     Dates: start: 20181031, end: 20181107
  6. PYRIDOXINE HYDROCHLORIDE/CYANOCOBALAMIN/RIBOFLAVIN/THIAMINE MONONITRATE [Concomitant]
     Indication: VITAMIN SUPPLEMENTATION
     Route: 048
  7. AZITHROMYCIN ANHYDROUS. [Concomitant]
     Active Substance: AZITHROMYCIN ANHYDROUS
     Indication: OPPORTUNISTIC INFECTION PROPHYLAXIS
     Dosage: 250 MG, UNK
     Route: 048
     Dates: start: 20181031
  8. EMTRICITABINE/DARUNAVIR ETHANOLATE/COBICISTAT/TENOFOVIR ALAFENAMIDE FUMARATE [Concomitant]
     Indication: LYMPHOCYTE ADOPTIVE THERAPY
     Route: 048
     Dates: start: 20181128, end: 20190311
  9. DAPSONE. [Concomitant]
     Active Substance: DAPSONE
     Indication: PRODUCT USED FOR UNKNOWN INDICATION
     Dosage: 200 MG, WE
     Route: 048
     Dates: start: 20181220
  10. SULFAMETHOXAZOLE/TRIMETHOPRIM [Suspect]
     Active Substance: SULFAMETHOXAZOLE\TRIMETHOPRIM
     Indication: PRODUCT USED FOR UNKNOWN INDICATION
     Dosage: UNK
     Route: 065
  11. PYRIMETHAMINE [Suspect]
     Active Substance: PYRIMETHAMINE
     Indication: TOXOPLASMOSIS
     Dosage: 50 MG, QD
     Route: 065
  12. CLINDAMYCIN. [Suspect]
     Active Substance: CLINDAMYCIN
     Indication: TOXOPLASMOSIS
     Dosage: UNK
     Route: 065
     Dates: start: 20181107

REACTIONS (5)
  - Bone marrow toxicity [Unknown]
  - Product use in unapproved indication [Unknown]
  - Leukopenia [Recovering/Resolving]
  - Rash [Recovering/Resolving]
  - Neutropenia [Recovering/Resolving]

NARRATIVE: CASE EVENT DATE: 20181105
